FAERS Safety Report 14255675 (Version 1)
Quarter: 2017Q4

REPORT INFORMATION
  Report Type: Spontaneous
  Country: US (occurrence: US)
  Receive Date: 20171206
  Receipt Date: 20171206
  Transmission Date: 20180321
  Serious: No
  Sender: FDA-Public Use
  Company Number: US-JUBILANT CADISTA PHARMACEUTICALS-2017JUB00364

PATIENT
  Age: 73 Year
  Sex: Female
  Weight: 63.49 kg

DRUGS (10)
  1. ATORVASTATIN [Concomitant]
     Active Substance: ATORVASTATIN
  2. METHYLPREDNISOLONE. [Suspect]
     Active Substance: METHYLPREDNISOLONE
     Indication: COUGH
     Dosage: UNK, AS DIRECTED
     Route: 048
     Dates: start: 20171013, end: 20171015
  3. ASPIRIN. [Concomitant]
     Active Substance: ASPIRIN
  4. VITAMIN D3 [Concomitant]
     Active Substance: CHOLECALCIFEROL
  5. NAPROXEN. [Concomitant]
     Active Substance: NAPROXEN
     Dosage: UNK
     Dates: start: 20171011, end: 20171014
  6. CENTRUM [Concomitant]
     Active Substance: VITAMINS
  7. METHYLPREDNISOLONE. [Suspect]
     Active Substance: METHYLPREDNISOLONE
     Indication: MALAISE
     Dosage: 4 MG, 1X/DAY
     Route: 048
     Dates: start: 20171016, end: 20171016
  8. VITMAIN B 2000 [Concomitant]
  9. GLUCOSAMINE [Concomitant]
     Active Substance: GLUCOSAMINE
  10. SYNTHROID [Concomitant]
     Active Substance: LEVOTHYROXINE SODIUM

REACTIONS (5)
  - Bradyphrenia [Recovered/Resolved]
  - Middle insomnia [Recovered/Resolved]
  - Hypoaesthesia [Recovered/Resolved]
  - Flushing [Recovered/Resolved]
  - Fear [Recovered/Resolved]

NARRATIVE: CASE EVENT DATE: 20171015
